FAERS Safety Report 7399009-8 (Version None)
Quarter: 2011Q2

REPORT INFORMATION
  Report Type: 
  Country: None (occurrence: None)
  Receive Date: 20110407
  Receipt Date: 20110404
  Transmission Date: 20111010
  Serious: Yes (Other)
  Sender: FDA-Public Use
  Company Number: TR-ELI_LILLY_AND_COMPANY-TR201104000856

PATIENT
  Age: 61 Year
  Sex: Female

DRUGS (9)
  1. HUMULIN N [Suspect]
     Dosage: UNK UNK, UNKNOWN
     Route: 058
  2. COVERSYL [Concomitant]
     Indication: HYPERTENSION
     Dosage: UNK
     Route: 048
  3. HUMULIN N [Suspect]
     Dosage: UNK UNK, UNKNOWN
     Route: 058
  4. HUMULIN N [Suspect]
     Dosage: UNK UNK, UNKNOWN
     Route: 058
  5. HUMALOG [Suspect]
     Indication: DIABETES MELLITUS
     Dosage: UNK, UNKNOWN
     Route: 065
  6. FEMARA [Concomitant]
     Indication: BREAST CANCER
     Dosage: UNK
     Route: 048
  7. HUMULIN N [Suspect]
     Indication: DIABETES MELLITUS
     Dosage: UNK UNK, UNKNOWN
     Route: 058
  8. HUMULIN N [Suspect]
     Dosage: UNK, UNKNOWN
     Route: 058
  9. GLUCOPHAGE [Concomitant]
     Indication: DIABETES MELLITUS
     Dosage: 850 MG, UNK
     Route: 048

REACTIONS (4)
  - EYE HAEMORRHAGE [None]
  - DRUG INEFFECTIVE [None]
  - BREAST CANCER [None]
  - BLOOD GLUCOSE INCREASED [None]
